FAERS Safety Report 16346854 (Version 1)
Quarter: 2019Q2

REPORT INFORMATION
  Report Type: Spontaneous
  Country: US (occurrence: US)
  Receive Date: 20190417
  Receipt Date: 20190417
  Transmission Date: 20190711
  Serious: No
  Sender: FDA-Public Use
  Company Number: None

PATIENT
  Sex: Female

DRUGS (1)
  1. GAMUNEX-C [Suspect]
     Active Substance: HUMAN IMMUNOGLOBULIN G
     Indication: IMMUNODEFICIENCY COMMON VARIABLE
     Route: 042
     Dates: start: 20181212

REACTIONS (7)
  - Skin infection [None]
  - Dyspnoea [None]
  - Eye infection [None]
  - Pyrexia [None]
  - Arthritis [None]
  - Incorrect dose administered [None]
  - Sinusitis [None]
